FAERS Safety Report 9915252 (Version 2)
Quarter: 2014Q1

REPORT INFORMATION
  Report Type: Spontaneous
  Country: JP (occurrence: JP)
  Receive Date: 20140221
  Receipt Date: 20140221
  Transmission Date: 20141002
  Serious: Yes (Other)
  Sender: FDA-Public Use
  Company Number: JP-ROCHE-1299627

PATIENT
  Age: 60 Year
  Sex: Female
  Weight: 59 kg

DRUGS (2)
  1. AVASTIN [Suspect]
     Indication: BREAST CANCER METASTATIC
     Dosage: THE TENTH LINE THERAPY
     Route: 041
     Dates: start: 20130821, end: 20131002
  2. PACLITAXEL [Concomitant]
     Indication: BREAST CANCER METASTATIC
     Route: 041
     Dates: start: 20130821, end: 20131016

REACTIONS (3)
  - Skin ulcer [Not Recovered/Not Resolved]
  - Skin exfoliation [Unknown]
  - Infection [Unknown]
